FAERS Safety Report 6166635-3 (Version None)
Quarter: 2009Q2

REPORT INFORMATION
  Report Type: 
  Country: None (occurrence: None)
  Receive Date: 20090422
  Receipt Date: 20090422
  Transmission Date: 20091009
  Serious: Yes (Other)
  Sender: FDA-Public Use
  Company Number: None

PATIENT
  Age: 45 Year
  Sex: Female
  Weight: 69.4003 kg

DRUGS (1)
  1. BUPROPION XL 300MG, TEVA [Suspect]
     Indication: BIPOLAR I DISORDER
     Dosage: 300MG ONCE QD PO
     Route: 048
     Dates: start: 20090330

REACTIONS (2)
  - DEPRESSED MOOD [None]
  - PRURITUS GENERALISED [None]
